FAERS Safety Report 5373785-8 (Version None)
Quarter: 2007Q2

REPORT INFORMATION
  Report Type: 
  Country: None (occurrence: None)
  Receive Date: 20070615
  Receipt Date: 20070110
  Transmission Date: 20071010
  Serious: Yes (Hospitalization)
  Sender: FDA-Public Use
  Company Number: 200710314US

PATIENT
  Sex: Male

DRUGS (2)
  1. LANTUS [Suspect]
     Dosage: 50 U
  2. LANTUS [Suspect]
     Dosage: 30 U

REACTIONS (1)
  - BLOOD GLUCOSE DECREASED [None]
